FAERS Safety Report 5590518-0 (Version None)
Quarter: 2008Q1

REPORT INFORMATION
  Report Type: 
  Country: None (occurrence: None)
  Receive Date: 20080114
  Receipt Date: 20071218
  Transmission Date: 20080703
  Serious: No
  Sender: FDA-Public Use
  Company Number: US-BOEHRINGER INGELHEIM PHARMACEUTICALS, INC.-2007-BP-26579BP

PATIENT
  Sex: Female

DRUGS (8)
  1. ZANTAC 75 [Suspect]
     Indication: DYSPEPSIA
     Route: 048
     Dates: start: 20071201, end: 20071211
  2. ZANTAC 75 [Suspect]
  3. PRILOSEC [Concomitant]
  4. BP MED [Concomitant]
  5. BP MED [Concomitant]
  6. REMERON [Concomitant]
  7. TRANXENE [Concomitant]
  8. DYAZIDE [Concomitant]

REACTIONS (1)
  - RASH PRURITIC [None]
